FAERS Safety Report 9204128 (Version 2)
Quarter: 2017Q1

REPORT INFORMATION
  Report Type: Report from Study
  Country: US (occurrence: US)
  Receive Date: 20130402
  Receipt Date: 20170203
  Transmission Date: 20170429
  Serious: Yes (Other)
  Sender: FDA-Public Use
  Company Number: US-CELGENEUS-163-22393-13034362

PATIENT

DRUGS (2)
  1. BORTEZOMIB [Suspect]
     Active Substance: BORTEZOMIB
     Indication: CHRONIC LYMPHOCYTIC LEUKAEMIA
     Dosage: 1.3-1.6- 16 MG/M2
     Route: 040
  2. ISTODAX [Suspect]
     Active Substance: ROMIDEPSIN
     Indication: CHRONIC LYMPHOCYTIC LEUKAEMIA
     Dosage: 8-10-12 MG/M2
     Route: 041

REACTIONS (33)
  - Fatigue [Unknown]
  - Dizziness [Unknown]
  - Leukopenia [Unknown]
  - Chronic lymphocytic leukaemia [Unknown]
  - Lymphopenia [Unknown]
  - Injection site reaction [Unknown]
  - Meibomianitis [Unknown]
  - Decreased appetite [Unknown]
  - Blood creatinine increased [Unknown]
  - Dry eye [Unknown]
  - Malaise [Unknown]
  - Myalgia [Unknown]
  - Neutropenia [Unknown]
  - Dyspepsia [Unknown]
  - Ear pain [Unknown]
  - Peripheral sensory neuropathy [Unknown]
  - Hypophosphataemia [Unknown]
  - Infusion site extravasation [Unknown]
  - Weight decreased [Unknown]
  - Cytokine release syndrome [Unknown]
  - Soft tissue infection [Unknown]
  - Anaemia [Unknown]
  - Electrocardiogram QT prolonged [Unknown]
  - Cough [Unknown]
  - Pyrexia [Unknown]
  - Chalazion [Unknown]
  - Thrombocytopenia [Unknown]
  - Arthralgia [Unknown]
  - Dehydration [Unknown]
  - Dry skin [Unknown]
  - Oesophageal infection [Unknown]
  - Flatulence [Unknown]
  - Sinusitis [Unknown]
